FAERS Safety Report 10482268 (Version 2)
Quarter: 2014Q4

REPORT INFORMATION
  Report Type: Spontaneous
  Country: US (occurrence: US)
  Receive Date: 20140929
  Receipt Date: 20141028
  Transmission Date: 20150528
  Serious: Yes (Other)
  Sender: FDA-Public Use
  Company Number: US-PFIZER INC-2014263458

PATIENT
  Age: 69 Year
  Sex: Female

DRUGS (2)
  1. INLYTA [Suspect]
     Active Substance: AXITINIB
     Dosage: 1 MG, 2X/DAY
     Route: 048
     Dates: start: 20140827, end: 20141022
  2. INLYTA [Suspect]
     Active Substance: AXITINIB
     Indication: RENAL CANCER
     Dosage: 1 MG, 2X/DAY
     Route: 048
     Dates: start: 20140826

REACTIONS (3)
  - Pain [Recovering/Resolving]
  - Renal cancer [Unknown]
  - Disease progression [Unknown]

NARRATIVE: CASE EVENT DATE: 2014
